FAERS Safety Report 9474701 (Version 1)
Quarter: 2013Q3

REPORT INFORMATION
  Report Type: Spontaneous
  Country: US (occurrence: US)
  Receive Date: 20130823
  Receipt Date: 20130823
  Transmission Date: 20140515
  Serious: Yes (Other)
  Sender: FDA-Public Use
  Company Number: US-ASTRAZENECA-2013SE63756

PATIENT
  Age: 79 Year
  Sex: Female
  Weight: 59 kg

DRUGS (8)
  1. ARIMIDEX [Suspect]
     Indication: BREAST CANCER FEMALE
     Dosage: ANASTROZOLE, 1 MG, DAILY
     Route: 048
     Dates: start: 201307, end: 201307
  2. ARIMIDEX [Suspect]
     Indication: BREAST CANCER FEMALE
     Route: 048
     Dates: start: 201307
  3. NEXIUM [Suspect]
     Route: 048
     Dates: start: 2011, end: 2013
  4. LISINOPRIL [Suspect]
     Indication: HYPERTENSION
     Route: 048
     Dates: start: 1998
  5. METOPROLOL SUCCINATE [Suspect]
     Indication: HYPERTENSION
     Route: 048
     Dates: start: 1998
  6. ANESTHESIA [Suspect]
  7. UNSPECIFIED [Suspect]
  8. HYDROCHLOROTHIAZIDE [Concomitant]
     Indication: HYPERTENSION
     Dates: start: 1998

REACTIONS (20)
  - Hiatus hernia [Unknown]
  - Breast cancer female [Unknown]
  - Gastric disorder [Unknown]
  - Gastritis [Unknown]
  - Weight decreased [Unknown]
  - Aphagia [Recovered/Resolved]
  - Infection [Unknown]
  - Pain in extremity [Not Recovered/Not Resolved]
  - Finger deformity [Recovered/Resolved]
  - Mood altered [Unknown]
  - Back pain [Unknown]
  - Malaise [Recovered/Resolved]
  - Decreased appetite [Unknown]
  - Decreased appetite [Unknown]
  - Dizziness [Unknown]
  - Fatigue [Unknown]
  - Depression [Unknown]
  - Diarrhoea [Recovered/Resolved]
  - Nausea [Recovered/Resolved]
  - Drug ineffective [Unknown]
